FAERS Safety Report 10290760 (Version 1)
Quarter: 2014Q3

REPORT INFORMATION
  Report Type: Spontaneous
  Country: IT (occurrence: None)
  Receive Date: 20140708
  Receipt Date: 20140708
  Transmission Date: 20150326
  Serious: Yes (Hospitalization, Other)
  Sender: FDA-Public Use
  Company Number: AUR-APL-2014-07025

PATIENT
  Age: 67 Year
  Sex: Female
  Weight: 50 kg

DRUGS (4)
  1. DELTACORTENE (PREDNISONE) [Concomitant]
     Active Substance: PREDNISONE
  2. LEVOFLOXACIN [Suspect]
     Active Substance: LEVOFLOXACIN
     Indication: PNEUMONIA
     Route: 048
     Dates: start: 20140117, end: 20140127
  3. DIBASE (COLECALCIFEROL) [Concomitant]
  4. CLARITHROMYCIN (CLARITHROMYCIN) [Suspect]
     Active Substance: CLARITHROMYCIN
     Indication: PNEUMONIA
     Route: 048
     Dates: start: 20140117, end: 20140127

REACTIONS (5)
  - Overlap syndrome [None]
  - Dyspnoea [None]
  - Haemodynamic instability [None]
  - Toxic epidermal necrolysis [None]
  - Pyrexia [None]

NARRATIVE: CASE EVENT DATE: 20140124
